FAERS Safety Report 6671772-0 (Version None)
Quarter: 2010Q2

REPORT INFORMATION
  Report Type: 
  Country: None (occurrence: None)
  Receive Date: 20100407
  Receipt Date: 20100326
  Transmission Date: 20101027
  Serious: Yes (Other)
  Sender: FDA-Public Use
  Company Number: GB-PFIZER INC-2010039416

PATIENT

DRUGS (9)
  1. ZYVOX [Suspect]
     Indication: RENAL ABSCESS
     Dosage: UNK
     Route: 042
  2. ZYVOX [Suspect]
     Indication: RENAL NECROSIS
  3. ZYVOX [Suspect]
     Dosage: 600 MG, 2X/DAY
     Route: 048
  4. ZYVOX [Suspect]
  5. FUROSEMIDE [Concomitant]
     Dosage: UNK
  6. ENOXAPARIN SODIUM [Concomitant]
     Dosage: UNK
  7. PARACETAMOL [Concomitant]
     Dosage: UNK
  8. CALCIUM [Concomitant]
     Dosage: UNK
  9. SALBUTAMOL [Concomitant]
     Dosage: UNK

REACTIONS (2)
  - HYPERKALAEMIA [None]
  - RENAL FAILURE [None]
